FAERS Safety Report 4409604-3 (Version None)
Quarter: 2004Q3

REPORT INFORMATION
  Report Type: 
  Country: None (occurrence: None)
  Receive Date: 20040726
  Receipt Date: 20040712
  Transmission Date: 20050211
  Serious: Yes (Death)
  Sender: FDA-Public Use
  Company Number: 2004-UK-00676UK

PATIENT
  Age: 68 Year
  Sex: Male

DRUGS (7)
  1. SPIRIVA [Suspect]
     Indication: CHRONIC OBSTRUCTIVE AIRWAYS DISEASE
     Dosage: 18 MCG (18 MCG)
     Route: 055
     Dates: start: 20030603
  2. SALBUTAMOL(SALBUTAMOL) [Concomitant]
  3. AMOXICILLIN [Concomitant]
  4. SALMETEROL(SALMETEROL) [Concomitant]
  5. COMBIVENT [Concomitant]
  6. DOXYCYCLINE [Concomitant]
  7. SLO-PHYLLIN (AMINOPHYLLINE) [Concomitant]

REACTIONS (1)
  - SUDDEN DEATH [None]
